FAERS Safety Report 8352135-9 (Version None)
Quarter: 2012Q2

REPORT INFORMATION
  Report Type: 
  Country: None (occurrence: None)
  Receive Date: 20120510
  Receipt Date: 20120510
  Transmission Date: 20120825
  Serious: No
  Sender: FDA-Public Use
  Company Number: None

PATIENT
  Age: 53 Year
  Sex: Female

DRUGS (10)
  1. FLUTICASONE FUROATE [Concomitant]
  2. POTASSIUM CHLORIDE [Concomitant]
  3. SERTRALINE HYDROCHLORIDE [Concomitant]
  4. AMILORIDE HYDROCHLORIDE [Concomitant]
  5. PRILOSEC [Concomitant]
  6. REVLIMID [Suspect]
     Indication: LYMPHOMA
     Dosage: REVLIMID 15 MG DAILY X21D/28D ORALLY
     Route: 048
     Dates: start: 20120301
  7. QVAR 40 [Concomitant]
  8. PROAIR HFA [Concomitant]
  9. ASPIRIN [Concomitant]
  10. METOPROLOL TARTRATE [Concomitant]

REACTIONS (1)
  - NEUTROPENIA [None]
